FAERS Safety Report 7931741-7 (Version None)
Quarter: 2011Q4

REPORT INFORMATION
  Report Type: 
  Country: None (occurrence: None)
  Receive Date: 20111121
  Receipt Date: 20111117
  Transmission Date: 20120403
  Serious: Yes (Death, Hospitalization)
  Sender: FDA-Public Use
  Company Number: PHHY2011BR101388

PATIENT
  Age: 53 Year
  Sex: Female

DRUGS (2)
  1. FORMOTEROL FUMARATE [Suspect]
     Indication: PULMONARY FIBROSIS
  2. FORMOTEROL FUMARATE [Suspect]
     Indication: ASTHMA

REACTIONS (2)
  - DYSPNOEA [None]
  - FATIGUE [None]
